FAERS Safety Report 16057127 (Version 1)
Quarter: 2019Q2

REPORT INFORMATION
  Report Type: Spontaneous
  Country: US (occurrence: US)
  Receive Date: 20190311
  Receipt Date: 20190311
  Transmission Date: 20190711
  Serious: Yes (Death)
  Sender: FDA-Public Use
  Company Number: None

PATIENT
  Age: 79 Year
  Sex: Male
  Weight: 61.38 kg

DRUGS (5)
  1. LUPRON DEPOT-PED [Concomitant]
     Active Substance: LEUPROLIDE ACETATE
  2. IBUPROFEN. [Concomitant]
     Active Substance: IBUPROFEN
  3. ABIRATERONE ACETATE. [Suspect]
     Active Substance: ABIRATERONE ACETATE
     Indication: PROSTATE CANCER
     Route: 048
     Dates: start: 20180921, end: 20190309
  4. CYANOCOBALAMIN. [Concomitant]
     Active Substance: CYANOCOBALAMIN
  5. FOLIC ACID. [Concomitant]
     Active Substance: FOLIC ACID

REACTIONS (1)
  - Death [None]

NARRATIVE: CASE EVENT DATE: 20190309
